FAERS Safety Report 17597634 (Version 2)
Quarter: 2020Q1

REPORT INFORMATION
  Report Type: Other
  Country: CA (occurrence: CA)
  Receive Date: 20200330
  Receipt Date: 20200330
  Transmission Date: 20200409
  Serious: Yes (Disabling)
  Sender: FDA-Public Use
  Company Number: CA-EMCURE PHARMACEUTICALS LTD-2020-EPL-000349

PATIENT
  Age: 61 Year
  Sex: Male
  Weight: 97.51 kg

DRUGS (1)
  1. RISPERIDONE. [Suspect]
     Active Substance: RISPERIDONE
     Indication: PSYCHOTIC DISORDER
     Dosage: UNK

REACTIONS (2)
  - Priapism [Not Recovered/Not Resolved]
  - Deformity [Not Recovered/Not Resolved]
